FAERS Safety Report 16684156 (Version 1)
Quarter: 2019Q3

REPORT INFORMATION
  Report Type: Spontaneous
  Country: US (occurrence: US)
  Receive Date: 20190808
  Receipt Date: 20190808
  Transmission Date: 20191004
  Serious: Yes (Hospitalization)
  Sender: FDA-Public Use
  Company Number: US-VERTEX PHARMACEUTICALS-2019-007294

PATIENT
  Age: 35 Year
  Sex: Female

DRUGS (24)
  1. VITAMIN D3 [Concomitant]
     Active Substance: CHOLECALCIFEROL
  2. URSODIOL. [Concomitant]
     Active Substance: URSODIOL
  3. VITAMIN A [RETINOL] [Concomitant]
     Active Substance: RETINOL
  4. SYMDEKO [Suspect]
     Active Substance: IVACAFTOR\TEZACAFTOR
     Indication: CYSTIC FIBROSIS
     Dosage: 100MG TEZACAFTOR/150MG IVACAFTOR AM; 150MG IVACAFTOR PM WITH FAT CONTAINING FOODS
     Route: 048
     Dates: start: 201811
  5. VITAMIN C [Concomitant]
     Active Substance: ASCORBIC ACID
  6. OMEPRAZOLE. [Concomitant]
     Active Substance: OMEPRAZOLE
  7. ONDANSETRON HCL [Concomitant]
     Active Substance: ONDANSETRON HYDROCHLORIDE
  8. STERILE WATER [Concomitant]
     Active Substance: WATER
  9. ALPRAZOLAM. [Concomitant]
     Active Substance: ALPRAZOLAM
  10. CYCLOBENZAPRINE HCL [Concomitant]
     Active Substance: CYCLOBENZAPRINE HYDROCHLORIDE
  11. PANCREAZE [Concomitant]
     Active Substance: PANCRELIPASE AMYLASE\PANCRELIPASE LIPASE\PANCRELIPASE PROTEASE
  12. MEPHYTON [Concomitant]
     Active Substance: PHYTONADIONE
  13. HYDROMORPHONE HCL [Concomitant]
     Active Substance: HYDROMORPHONE HYDROCHLORIDE
  14. TRAMADOL HCL [Concomitant]
     Active Substance: TRAMADOL HYDROCHLORIDE
  15. ZINC GLUCONATE [Concomitant]
     Active Substance: ZINC GLUCONATE
  16. AZITHROMYCIN ANHYDROUS. [Concomitant]
     Active Substance: AZITHROMYCIN ANHYDROUS
  17. ESTRADIOL. [Concomitant]
     Active Substance: ESTRADIOL
  18. COLISTIMETHATE SODIUM. [Concomitant]
     Active Substance: COLISTIMETHATE SODIUM
  19. VITAMIN E [Concomitant]
     Active Substance: .ALPHA.-TOCOPHEROL
  20. ALBUTEROL SULFATE. [Concomitant]
     Active Substance: ALBUTEROL SULFATE
  21. CETIRIZINE HCL [Concomitant]
     Active Substance: CETIRIZINE HYDROCHLORIDE
  22. DIPHENHYDRAMINE HCL [Concomitant]
     Active Substance: DIPHENHYDRAMINE HYDROCHLORIDE
  23. POLYETHYLENE GLYCOL 3350. [Concomitant]
     Active Substance: POLYETHYLENE GLYCOL 3350
  24. CAYSTON [Concomitant]
     Active Substance: AZTREONAM

REACTIONS (1)
  - Pneumonia [Not Recovered/Not Resolved]

NARRATIVE: CASE EVENT DATE: 201907
